FAERS Safety Report 18137243 (Version 6)
Quarter: 2020Q3

REPORT INFORMATION
  Report Type: Report from Study
  Country: None (occurrence: CH)
  Receive Date: 20200812
  Receipt Date: 20200916
  Transmission Date: 20201103
  Serious: Yes (Hospitalization, Other)
  Sender: FDA-Public Use
  Company Number: CH-ABBVIE-20K-151-3520590-00

PATIENT
  Age: 77 Year
  Sex: Male

DRUGS (4)
  1. DUODOPA [Suspect]
     Active Substance: CARBIDOPA\LEVODOPA
     Indication: PARKINSON^S DISEASE
     Route: 050
     Dates: start: 20151027, end: 20180612
  2. XARELTO [Suspect]
     Active Substance: RIVAROXABAN
     Indication: PULMONARY EMBOLISM
     Route: 065
     Dates: start: 2017, end: 202008
  3. DUODOPA [Suspect]
     Active Substance: CARBIDOPA\LEVODOPA
     Dosage: MD: 7 ML, CRD: 2.7 ML/H, CRN: 2.2 ML/H, ED: 1.8 ML, 24 H THERAPY
     Route: 050
     Dates: start: 20180612, end: 20200215
  4. DUODOPA [Suspect]
     Active Substance: CARBIDOPA\LEVODOPA
     Dosage: MD: 4 ML, CRD: 2.7 ML/H, CRN: 2.2 ML/H, ED: 1.8 ML, 24 H THERAPY
     Route: 050
     Dates: start: 20200215

REACTIONS (6)
  - Device kink [Recovered/Resolved]
  - Anaemia [Recovering/Resolving]
  - Gastrointestinal haemorrhage [Recovering/Resolving]
  - Puncture site haemorrhage [Unknown]
  - Pulmonary embolism [Unknown]
  - Melaena [Recovered/Resolved]

NARRATIVE: CASE EVENT DATE: 20170913
